FAERS Safety Report 5975602-1 (Version None)
Quarter: 2008Q4

REPORT INFORMATION
  Report Type: 
  Country: None (occurrence: None)
  Receive Date: 20081202
  Receipt Date: 20081122
  Transmission Date: 20090506
  Serious: Yes (Other)
  Sender: FDA-Public Use
  Company Number: FR-GENENTECH-272300

PATIENT
  Age: 15 Year
  Sex: Male
  Weight: 110 kg

DRUGS (1)
  1. XOLAIR [Suspect]
     Indication: ASTHMA
     Dosage: 750 MG, 1/MONTH
     Route: 058

REACTIONS (1)
  - WEIGHT DECREASED [None]
